FAERS Safety Report 20984119 (Version 3)
Quarter: 2022Q3

REPORT INFORMATION
  Report Type: Report from Study
  Country: AR (occurrence: AR)
  Receive Date: 20220621
  Receipt Date: 20220716
  Transmission Date: 20221026
  Serious: Yes (Life-Threatening, Hospitalization, Other)
  Sender: FDA-Public Use
  Company Number: AR-AMGEN-ARGSL2022103284

PATIENT
  Age: 32 Year
  Sex: Male

DRUGS (1)
  1. BLINCYTO [Suspect]
     Active Substance: BLINATUMOMAB
     Indication: Acute lymphocytic leukaemia
     Dosage: UNK UNK, QMO
     Route: 065
     Dates: start: 20220525, end: 20220712

REACTIONS (4)
  - Seizure [Unknown]
  - Pyrexia [Unknown]
  - Toxicity to various agents [Unknown]
  - Gait inability [Unknown]

NARRATIVE: CASE EVENT DATE: 20220608
